FAERS Safety Report 10076285 (Version 1)
Quarter: 2014Q2

REPORT INFORMATION
  Report Type: Spontaneous
  Country: IE (occurrence: IE)
  Receive Date: 20140414
  Receipt Date: 20140414
  Transmission Date: 20141212
  Serious: Yes (Hospitalization, Other)
  Sender: FDA-Public Use
  Company Number: IE-ACTAVIS-2014-06969

PATIENT
  Age: 45 Year
  Sex: Female

DRUGS (2)
  1. METHOTREXATE (UNKNOWN) [Suspect]
     Indication: SERONEGATIVE ARTHRITIS
     Dosage: 10 MG, 1/WEEK
     Route: 065
  2. PREDNISOLONE (UNKNOWN) [Suspect]
     Indication: SERONEGATIVE ARTHRITIS
     Dosage: 5 MG, UNK
     Route: 065

REACTIONS (3)
  - Necrotising fasciitis [Recovered/Resolved]
  - Escherichia infection [Recovered/Resolved]
  - Bacteroides infection [Recovered/Resolved]
